FAERS Safety Report 5194075-2 (Version None)
Quarter: 2006Q4

REPORT INFORMATION
  Report Type: 
  Country: None (occurrence: None)
  Receive Date: 20061222
  Receipt Date: 20061205
  Transmission Date: 20070319
  Serious: Yes (Hospitalization)
  Sender: FDA-Public Use
  Company Number: 8018068

PATIENT
  Age: 80 Year
  Sex: Female
  Weight: 40 kg

DRUGS (3)
  1. KEPPRA [Suspect]
     Indication: COMPLEX PARTIAL SEIZURES
     Dosage: 125 MG 1/D PO
     Route: 048
     Dates: start: 20050501
  2. ATIVAN [Concomitant]
  3. SYNTHROID [Concomitant]

REACTIONS (3)
  - MALAISE [None]
  - NAUSEA [None]
  - PHARMACEUTICAL PRODUCT COMPLAINT [None]
